FAERS Safety Report 16069892 (Version 2)
Quarter: 2019Q2

REPORT INFORMATION
  Report Type: Report from Study
  Country: None (occurrence: DE)
  Receive Date: 20190314
  Receipt Date: 20190419
  Transmission Date: 20190711
  Serious: Yes (Death, Hospitalization, Other)
  Sender: FDA-Public Use
  Company Number: DE-ABBVIE-19S-062-2701150-00

PATIENT
  Age: 75 Year
  Sex: Male

DRUGS (4)
  1. ELIQUIS [Concomitant]
     Active Substance: APIXABAN
     Indication: BRADYCARDIA
  2. DUODOPA [Suspect]
     Active Substance: CARBIDOPA\LEVODOPA
     Indication: DYSPHAGIA
  3. DUODOPA [Suspect]
     Active Substance: CARBIDOPA\LEVODOPA
     Indication: PARKINSON^S DISEASE
     Dosage: MD 8.0ML; CRD 3.5ML/HR; ED 1.5ML
     Route: 050
     Dates: start: 20180824
  4. ELIQUIS [Concomitant]
     Active Substance: APIXABAN
     Indication: ATRIAL FIBRILLATION

REACTIONS (15)
  - Increased bronchial secretion [Unknown]
  - General physical health deterioration [Unknown]
  - Urine abnormality [Unknown]
  - Infection [Unknown]
  - Dehydration [Unknown]
  - Hallucination [Unknown]
  - Decubitus ulcer [Not Recovered/Not Resolved]
  - Device occlusion [Recovered/Resolved]
  - Device use error [Unknown]
  - Pneumonia [Fatal]
  - Obstructive airways disorder [Unknown]
  - Device occlusion [Unknown]
  - Superinfection [Unknown]
  - Pulmonary congestion [Unknown]
  - Dysuria [Unknown]

NARRATIVE: CASE EVENT DATE: 201903
